FAERS Safety Report 4551557-1 (Version None)
Quarter: 2005Q1

REPORT INFORMATION
  Report Type: 
  Country: None (occurrence: None)
  Receive Date: 20050111
  Receipt Date: 20041227
  Transmission Date: 20050727
  Serious: Yes (Other)
  Sender: FDA-Public Use
  Company Number: SUSI-2004-00893

PATIENT
  Sex: Female

DRUGS (1)
  1. AGRYLIN [Suspect]
     Indication: MYELOPROLIFERATIVE DISORDER
     Dosage: 0.5 MG, 1X/DAY; QD
     Dates: start: 20040101

REACTIONS (1)
  - SUPRAVENTRICULAR TACHYCARDIA [None]
